FAERS Safety Report 14354965 (Version 3)
Quarter: 2018Q1

REPORT INFORMATION
  Report Type: Spontaneous
  Country: FR (occurrence: FR)
  Receive Date: 20180105
  Receipt Date: 20180203
  Transmission Date: 20180509
  Serious: Yes (Hospitalization)
  Sender: FDA-Public Use
  Company Number: FR-AUROBINDO-AUR-APL-2018-000098

PATIENT
  Age: 34 Year
  Sex: Female
  Weight: 107 kg

DRUGS (4)
  1. CYAMEMAZINE [Concomitant]
     Active Substance: CYAMEMAZINE
     Indication: PRODUCT USED FOR UNKNOWN INDICATION
     Dosage: CYAMEMAZINE 40MG/ML 10 GOUTTES SI BESOINS
     Route: 048
  2. CYAMEMAZINE [Concomitant]
     Active Substance: CYAMEMAZINE
     Dosage: CYAMEMAZINE 40MG/ML 10 GOUTTES SI BESOINS
     Route: 048
  3. ARIPIPRAZOLE. [Suspect]
     Active Substance: ARIPIPRAZOLE
     Indication: PSYCHOTIC DISORDER
     Dosage: 20 MG, ONCE A DAY
     Route: 048
     Dates: start: 2005
  4. ATENOLOL. [Concomitant]
     Active Substance: ATENOLOL
     Indication: PRODUCT USED FOR UNKNOWN INDICATION
     Dosage: .
     Route: 048
     Dates: start: 2014

REACTIONS (3)
  - Weight increased [Not Recovered/Not Resolved]
  - Dry mouth [Not Recovered/Not Resolved]
  - Diabetes insipidus [Not Recovered/Not Resolved]

NARRATIVE: CASE EVENT DATE: 2005
